FAERS Safety Report 6283359-2 (Version None)
Quarter: 2009Q3

REPORT INFORMATION
  Report Type: 
  Country: None (occurrence: None)
  Receive Date: 20090721
  Receipt Date: 20090721
  Transmission Date: 20100115
  Serious: Yes (Other)
  Sender: FDA-Public Use
  Company Number: None

PATIENT
  Sex: Female
  Weight: 93.441 kg

DRUGS (6)
  1. DOXORUBICIN HCL [Suspect]
  2. PACLITAXEL [Suspect]
  3. CYTOXAN [Suspect]
  4. ADRIAMYCIN RDF [Concomitant]
  5. TAXOL [Concomitant]
  6. TAMOXIFEN [Concomitant]

REACTIONS (1)
  - ENDOMETRIAL CANCER [None]
